FAERS Safety Report 15768033 (Version 1)
Quarter: 2018Q4

REPORT INFORMATION
  Report Type: Report from Study
  Country: JP (occurrence: JP)
  Receive Date: 20181227
  Receipt Date: 20181227
  Transmission Date: 20190205
  Serious: Yes (Hospitalization)
  Sender: FDA-Public Use
  Company Number: JP-MYLANLABS-2018M1096771

PATIENT
  Age: 44 Year
  Sex: Female

DRUGS (2)
  1. DOXORUBICIN [Suspect]
     Active Substance: DOXORUBICIN
     Indication: SOFT TISSUE SARCOMA
     Dosage: ON DAY 1 (COHORT 1), CUMULATIVE DOSE OF DOXORUBICIN WAS 450 MG/M2
     Route: 065
  2. OLARATUMAB [Concomitant]
     Active Substance: OLARATUMAB
     Indication: SOFT TISSUE SARCOMA
     Dosage: ON DAYS 1 AND 8 DURING EACH 21-DAY CYCLE
     Route: 065

REACTIONS (4)
  - Left ventricular dysfunction [Unknown]
  - Palpitations [Unknown]
  - Ejection fraction decreased [Unknown]
  - Dyspnoea [Unknown]
